FAERS Safety Report 8183006-9 (Version None)
Quarter: 2012Q1

REPORT INFORMATION
  Report Type: 
  Country: None (occurrence: None)
  Receive Date: 20120305
  Receipt Date: 20111111
  Transmission Date: 20120608
  Serious: No
  Sender: FDA-Public Use
  Company Number: US-BRISTOL-MYERS SQUIBB COMPANY-16226938

PATIENT
  Age: 64 Year
  Sex: Female

DRUGS (1)
  1. KOMBIGLYZE XR [Suspect]

REACTIONS (3)
  - BALANCE DISORDER [None]
  - HYPOAESTHESIA [None]
  - PARAESTHESIA [None]
